FAERS Safety Report 24078226 (Version 3)
Quarter: 2024Q3

REPORT INFORMATION
  Report Type: Spontaneous
  Country: US (occurrence: US)
  Receive Date: 20240711
  Receipt Date: 20240919
  Transmission Date: 20241016
  Serious: Yes (Hospitalization)
  Sender: JOHNSON AND JOHNSON
  Company Number: US-JNJFOC-20240720340

PATIENT
  Sex: Male

DRUGS (2)
  1. CARVYKTI [Suspect]
     Active Substance: CILTACABTAGENE AUTOLEUCEL
     Indication: Product used for unknown indication
     Route: 065
     Dates: start: 202311
  2. CYCLOPHOSPHAMIDE [Concomitant]
     Active Substance: CYCLOPHOSPHAMIDE
     Indication: Renal impairment
     Route: 065

REACTIONS (4)
  - Intestinal ischaemia [Unknown]
  - Volvulus [Unknown]
  - Gastrointestinal inflammation [Not Recovered/Not Resolved]
  - Clostridium test positive [Not Recovered/Not Resolved]
